FAERS Safety Report 10089558 (Version 2)
Quarter: 2014Q2

REPORT INFORMATION
  Report Type: Spontaneous
  Country: CA (occurrence: CA)
  Receive Date: 20140421
  Receipt Date: 20140515
  Transmission Date: 20141212
  Serious: Yes (Other)
  Sender: FDA-Public Use
  Company Number: CA-SA-2014SA048748

PATIENT
  Age: 20 Year
  Sex: Female
  Weight: 70 kg

DRUGS (3)
  1. TUBERSOL [Suspect]
     Indication: TUBERCULIN TEST
     Dosage: DOSAGE FORM: SOLUTION INTRADERMAL
     Route: 030
     Dates: start: 20131106, end: 20131106
  2. FLUVIRAL [Suspect]
     Indication: IMMUNISATION
     Route: 030
     Dates: start: 20131106, end: 20131106
  3. ALESSE [Concomitant]
     Route: 065

REACTIONS (1)
  - VIIth nerve paralysis [Not Recovered/Not Resolved]
